FAERS Safety Report 6115074-X (Version None)
Quarter: 2009Q1

REPORT INFORMATION
  Report Type: 
  Country: None (occurrence: None)
  Receive Date: 20090313
  Receipt Date: 20090304
  Transmission Date: 20090719
  Serious: Yes (Hospitalization)
  Sender: FDA-Public Use
  Company Number: B0563154A

PATIENT
  Age: 73 Year
  Sex: Male

DRUGS (7)
  1. ALKERAN [Suspect]
     Indication: MULTIPLE MYELOMA
     Route: 042
     Dates: start: 20081010, end: 20081019
  2. CORTANCYL [Suspect]
     Indication: MULTIPLE MYELOMA
     Dosage: 2MGK PER DAY
     Route: 042
     Dates: start: 20081010, end: 20081019
  3. THALIDOMIDE [Suspect]
     Indication: MULTIPLE MYELOMA
     Dosage: 100MG PER DAY
     Route: 048
     Dates: start: 20081010, end: 20081019
  4. PREVISCAN [Concomitant]
     Route: 048
  5. VASTAREL [Concomitant]
     Route: 048
  6. PERINDOPRIL ERBUMINE [Concomitant]
     Route: 048
  7. ZOMETA [Concomitant]
     Indication: MULTIPLE MYELOMA
     Route: 042
     Dates: start: 20080929

REACTIONS (2)
  - CUTANEOUS VASCULITIS [None]
  - PURPURA [None]
